FAERS Safety Report 5150546-6 (Version None)
Quarter: 2006Q4

REPORT INFORMATION
  Report Type: 
  Country: None (occurrence: None)
  Receive Date: 20061110
  Receipt Date: 20061110
  Transmission Date: 20070319
  Serious: No
  Sender: FDA-Public Use
  Company Number: None

PATIENT
  Age: 44 Year
  Sex: Female
  Weight: 100.2449 kg

DRUGS (1)
  1. ACETAMINOPHEN [Suspect]
     Indication: PAIN IN EXTREMITY
     Dosage: 2 EA   AS NEEDED   PO
     Route: 048
     Dates: start: 20061101, end: 20061108

REACTIONS (1)
  - ABDOMINAL PAIN UPPER [None]
